FAERS Safety Report 5281608-0 (Version None)
Quarter: 2007Q1

REPORT INFORMATION
  Report Type: 
  Country: None (occurrence: None)
  Receive Date: 20070330
  Receipt Date: 20070319
  Transmission Date: 20070707
  Serious: Yes (Other)
  Sender: FDA-Public Use
  Company Number: PHBS2007BR05231

PATIENT
  Age: 70 Year
  Sex: Female

DRUGS (1)
  1. ZOLEDRONATE [Suspect]
     Indication: BREAST CANCER METASTATIC
     Dosage: 4 MG IN WEEKLY CYCLES

REACTIONS (9)
  - ABSCESS DRAINAGE [None]
  - DYSGEUSIA [None]
  - MANDIBULECTOMY [None]
  - OEDEMA MUCOSAL [None]
  - ORAL PAIN [None]
  - OSTEONECROSIS [None]
  - PURULENCE [None]
  - STOMATITIS [None]
  - SURGERY [None]
